FAERS Safety Report 18166052 (Version 1)
Quarter: 2020Q3

REPORT INFORMATION
  Report Type: Spontaneous
  Country: US (occurrence: US)
  Receive Date: 20200818
  Receipt Date: 20200818
  Transmission Date: 20201103
  Serious: No
  Sender: FDA-Public Use
  Company Number: US-OTSUKA-2018_023624

PATIENT
  Sex: Female

DRUGS (5)
  1. PROZAC [Concomitant]
     Active Substance: FLUOXETINE HYDROCHLORIDE
     Indication: PRODUCT USED FOR UNKNOWN INDICATION
     Dosage: UNK
     Route: 065
  2. LITHIUM CARBONATE. [Concomitant]
     Active Substance: LITHIUM CARBONATE
     Indication: PRODUCT USED FOR UNKNOWN INDICATION
     Dosage: 1 DF, BID
     Route: 048
  3. ABILIFY [Suspect]
     Active Substance: ARIPIPRAZOLE
     Indication: MAJOR DEPRESSION
     Dosage: 10 MG, QD
     Route: 048
     Dates: start: 20110413, end: 201407
  4. OXYBUTYNIN. [Concomitant]
     Active Substance: OXYBUTYNIN CHLORIDE
     Indication: PRODUCT USED FOR UNKNOWN INDICATION
     Dosage: UNK
     Route: 065
  5. ABILIFY [Suspect]
     Active Substance: ARIPIPRAZOLE
     Dosage: UNK
     Route: 065
     Dates: start: 2011, end: 2011

REACTIONS (14)
  - Neutrophil count decreased [Recovered/Resolved]
  - Dyspnoea exertional [Unknown]
  - Urinary tract infection [Unknown]
  - Abdominal pain lower [Unknown]
  - Glycosylated haemoglobin increased [Unknown]
  - Blood creatinine increased [Recovered/Resolved]
  - Injury [Unknown]
  - Mental disorder [Unknown]
  - Economic problem [Unknown]
  - High density lipoprotein decreased [Recovered/Resolved]
  - Carbon dioxide decreased [Recovered/Resolved]
  - White blood cell count decreased [Recovered/Resolved]
  - Obsessive-compulsive disorder [Unknown]
  - Gambling disorder [Unknown]

NARRATIVE: CASE EVENT DATE: 20120628
